FAERS Safety Report 15291509 (Version 1)
Quarter: 2018Q3

REPORT INFORMATION
  Report Type: Report from Study
  Country: JP (occurrence: JP)
  Receive Date: 20180817
  Receipt Date: 20180817
  Transmission Date: 20181010
  Serious: Yes (Other)
  Sender: FDA-Public Use
  Company Number: JP-ELI_LILLY_AND_COMPANY-JP201808005140

PATIENT
  Age: 32 Year
  Sex: Female
  Weight: 66 kg

DRUGS (1)
  1. TADALAFIL [Suspect]
     Active Substance: TADALAFIL
     Indication: PRE-ECLAMPSIA
     Dosage: 20 MG, DAILY
     Route: 048

REACTIONS (3)
  - HELLP syndrome [Unknown]
  - Headache [Recovered/Resolved]
  - Maternal exposure during pregnancy [Recovered/Resolved]
